FAERS Safety Report 6322769-1 (Version None)
Quarter: 2009Q3

REPORT INFORMATION
  Report Type: 
  Country: None (occurrence: None)
  Receive Date: 20090824
  Receipt Date: 20090309
  Transmission Date: 20100115
  Serious: No
  Sender: FDA-Public Use
  Company Number: US-ABBOTT-09P-163-0561656-00

PATIENT
  Sex: Female
  Weight: 66.284 kg

DRUGS (16)
  1. NIASPAN [Suspect]
     Indication: BLOOD CHOLESTEROL INCREASED
     Route: 048
     Dates: start: 20081201, end: 20090201
  2. NIASPAN [Suspect]
     Route: 048
     Dates: start: 20090201, end: 20090304
  3. NIASPAN [Suspect]
     Route: 048
     Dates: start: 20090304
  4. ASPIRIN [Suspect]
     Indication: PROPHYLAXIS
     Route: 048
     Dates: start: 20081201
  5. ASPIRIN [Suspect]
     Indication: FLUSHING
     Dates: end: 20081201
  6. ASPIRIN [Suspect]
     Indication: CARDIAC DISORDER
  7. ASPIRIN [Suspect]
  8. LOPID [Concomitant]
     Indication: BLOOD CHOLESTEROL INCREASED
  9. REGLAN [Concomitant]
     Indication: GASTRIC DISORDER
  10. NEXIUM [Concomitant]
     Indication: GASTRIC DISORDER
  11. VALIUM [Concomitant]
     Indication: DEPRESSION
  12. WELLBUTRIN [Concomitant]
     Indication: DEPRESSION
  13. DOXEPIN HCL [Concomitant]
     Indication: SLEEP DISORDER THERAPY
  14. RISPERDAL [Concomitant]
     Indication: DEPRESSION
  15. SINGULAIR [Concomitant]
     Indication: HYPERSENSITIVITY
  16. SENNA S [Concomitant]
     Indication: CONSTIPATION

REACTIONS (8)
  - DIZZINESS [None]
  - EPISTAXIS [None]
  - FEELING HOT [None]
  - FLUSHING [None]
  - HEADACHE [None]
  - HEART RATE INCREASED [None]
  - HYPERHIDROSIS [None]
  - LOSS OF CONSCIOUSNESS [None]
